FAERS Safety Report 8344200-7 (Version None)
Quarter: 2012Q2

REPORT INFORMATION
  Report Type: 
  Country: None (occurrence: None)
  Receive Date: 20120508
  Receipt Date: 20120425
  Transmission Date: 20120825
  Serious: Yes (Other)
  Sender: FDA-Public Use
  Company Number: PHHY2012EC038375

PATIENT
  Sex: Female

DRUGS (5)
  1. HYPERLIPEN [Concomitant]
  2. NORVASC [Concomitant]
  3. ZOLEDRONOC ACID [Suspect]
     Dosage: 5 MG/100 ML, YEARLY
     Route: 042
     Dates: start: 20110401
  4. ZOLEDRONOC ACID [Suspect]
     Indication: OSTEOPOROSIS
     Dosage: 5 MG/100 ML, YEARLY
     Route: 042
     Dates: start: 20080101
  5. HYGROTON [Concomitant]

REACTIONS (4)
  - BONE FISSURE [None]
  - FALL [None]
  - PAIN [None]
  - BACK PAIN [None]
